FAERS Safety Report 6433351-X (Version None)
Quarter: 2009Q4

REPORT INFORMATION
  Report Type: 
  Country: None (occurrence: None)
  Receive Date: 20091105
  Receipt Date: 20091020
  Transmission Date: 20100525
  Serious: Yes (Other)
  Sender: FDA-Public Use
  Company Number: B0600407A

PATIENT
  Age: 45 Year
  Sex: Male

DRUGS (1)
  1. LAMIVUDINE [Suspect]

REACTIONS (3)
  - ACUTE MYELOID LEUKAEMIA [None]
  - ASCITES [None]
  - DRUG RESISTANCE [None]
